FAERS Safety Report 11822106 (Version 1)
Quarter: 2015Q4

REPORT INFORMATION
  Report Type: Spontaneous
  Country: US (occurrence: US)
  Receive Date: 20151210
  Receipt Date: 20151210
  Transmission Date: 20160305
  Serious: Yes (Hospitalization, Other)
  Sender: FDA-Public Use
  Company Number: US-BRISTOL-MYERS SQUIBB COMPANY-BMS-2015-083168

PATIENT
  Age: 59 Year
  Sex: Male

DRUGS (6)
  1. DAKLINZA [Suspect]
     Active Substance: DACLATASVIR
     Indication: HEPATITIS B
     Dosage: UNK
     Route: 065
     Dates: start: 20151108
  2. DAKLINZA [Suspect]
     Active Substance: DACLATASVIR
     Indication: CIRRHOSIS ALCOHOLIC
  3. SOVALDI [Suspect]
     Active Substance: SOFOSBUVIR
     Indication: CIRRHOSIS ALCOHOLIC
  4. INSULIN [Concomitant]
     Active Substance: INSULIN NOS
     Indication: TYPE 2 DIABETES MELLITUS
     Route: 065
  5. AMLODIPINE [Concomitant]
     Active Substance: AMLODIPINE BESYLATE
     Indication: HYPERTENSION
     Dosage: 5 MG, UNK
     Route: 065
  6. SOVALDI [Suspect]
     Active Substance: SOFOSBUVIR
     Indication: HEPATITIS B
     Dosage: UNK
     Route: 065
     Dates: start: 20151108

REACTIONS (5)
  - Hepatic encephalopathy [Unknown]
  - Hepatic cirrhosis [Unknown]
  - Off label use [Unknown]
  - Renal impairment [Unknown]
  - Liver transplant [Unknown]

NARRATIVE: CASE EVENT DATE: 201511
